FAERS Safety Report 11265062 (Version 2)
Quarter: 2015Q3

REPORT INFORMATION
  Report Type: Report from Study
  Country: US (occurrence: US)
  Receive Date: 20150713
  Receipt Date: 20150807
  Transmission Date: 20151125
  Serious: Yes (Hospitalization)
  Sender: FDA-Public Use
  Company Number: PHHO2014US012903

PATIENT
  Age: 71 Year
  Sex: Male
  Weight: 54.42 kg

DRUGS (3)
  1. FARYDAK [Suspect]
     Active Substance: PANOBINOSTAT
     Indication: PLASMA CELL MYELOMA
     Dosage: 20 MG
     Route: 048
     Dates: start: 20140908, end: 20140919
  2. DEXAMETHASONE. [Suspect]
     Active Substance: DEXAMETHASONE
     Indication: PLASMA CELL MYELOMA
     Dosage: 20 MG
     Route: 048
     Dates: start: 20140908, end: 20140919
  3. BORTEZOMIB [Suspect]
     Active Substance: BORTEZOMIB
     Indication: PLASMA CELL MYELOMA
     Dosage: 1.3 MG/M2
     Route: 058
     Dates: start: 20140908, end: 20140918

REACTIONS (9)
  - Heart rate irregular [Unknown]
  - Dehydration [Not Recovered/Not Resolved]
  - Fall [Recovered/Resolved]
  - Hypokalaemia [Not Recovered/Not Resolved]
  - Dizziness [Not Recovered/Not Resolved]
  - Thrombocytopenia [Recovering/Resolving]
  - Fatigue [Not Recovered/Not Resolved]
  - Fall [Unknown]
  - Hypertensive crisis [Recovered/Resolved]

NARRATIVE: CASE EVENT DATE: 20140911
